FAERS Safety Report 5811133-7 (Version None)
Quarter: 2008Q3

REPORT INFORMATION
  Report Type: 
  Country: None (occurrence: None)
  Receive Date: 20080716
  Receipt Date: 20080711
  Transmission Date: 20090109
  Serious: Yes (Death, Other)
  Sender: FDA-Public Use
  Company Number: PHHY2008JP12867

PATIENT
  Age: 53 Year
  Sex: Male

DRUGS (1)
  1. NEORAL [Suspect]
     Indication: STEM CELL TRANSPLANT
     Route: 048

REACTIONS (5)
  - MELAENA [None]
  - RENAL FAILURE ACUTE [None]
  - SEPSIS [None]
  - TOXIC ENCEPHALOPATHY [None]
  - VENOOCCLUSIVE DISEASE [None]
